FAERS Safety Report 17158701 (Version 1)
Quarter: 2019Q4

REPORT INFORMATION
  Report Type: Spontaneous
  Country: US (occurrence: US)
  Receive Date: 20191216
  Receipt Date: 20191216
  Transmission Date: 20200122
  Serious: No
  Sender: FDA-Public Use
  Company Number: US-HETERO-HET2019US01723

PATIENT
  Sex: Male

DRUGS (2)
  1. METHOCARBAMOL. [Suspect]
     Active Substance: METHOCARBAMOL
     Indication: UPPER-AIRWAY COUGH SYNDROME
  2. METHOCARBAMOL. [Suspect]
     Active Substance: METHOCARBAMOL
     Indication: HYPERSENSITIVITY
     Dosage: 500 MG
     Route: 065

REACTIONS (1)
  - Prostatic specific antigen increased [Unknown]
